FAERS Safety Report 19434243 (Version 1)
Quarter: 2021Q2

REPORT INFORMATION
  Report Type: Spontaneous
  Country: US (occurrence: US)
  Receive Date: 20210617
  Receipt Date: 20210617
  Transmission Date: 20210717
  Serious: No
  Sender: FDA-Public Use
  Company Number: US-ROCHE-2577128

PATIENT
  Sex: Female
  Weight: 79.45 kg

DRUGS (1)
  1. ACTEMRA [Suspect]
     Active Substance: TOCILIZUMAB
     Indication: RHEUMATOID ARTHRITIS
     Dosage: EVERY 2 WEEKS ;ONGOING: YES
     Route: 058
     Dates: start: 20200314

REACTIONS (4)
  - No adverse event [Unknown]
  - Occupational exposure to product [Recovered/Resolved]
  - Product packaging issue [Unknown]
  - Drug delivery system issue [Recovered/Resolved]
